FAERS Safety Report 22112876 (Version 4)
Quarter: 2024Q2

REPORT INFORMATION
  Report Type: Spontaneous
  Country: DE (occurrence: DE)
  Receive Date: 20230320
  Receipt Date: 20240502
  Transmission Date: 20240715
  Serious: Yes (Other)
  Sender: FDA-Public Use
  Company Number: DE-TEVA-2023-DE-2862601

PATIENT
  Sex: Male

DRUGS (1)
  1. LEUPROLIDE ACETATE [Suspect]
     Active Substance: ISOPROPYL ALCOHOL\LEUPROLIDE ACETATE
     Indication: Withdrawal syndrome
     Dosage: UNK UNK, Q3WEEKS
     Route: 065
     Dates: start: 202106

REACTIONS (2)
  - Arrhythmia [Recovered/Resolved]
  - Extrasystoles [Recovered/Resolved]
